FAERS Safety Report 7958398-3 (Version None)
Quarter: 2011Q4

REPORT INFORMATION
  Report Type: 
  Country: None (occurrence: None)
  Receive Date: 20111205
  Receipt Date: 20111128
  Transmission Date: 20120403
  Serious: Yes (Hospitalization)
  Sender: FDA-Public Use
  Company Number: GB-MERCK-1111GBR00129

PATIENT
  Age: 93 Year
  Sex: Male

DRUGS (1)
  1. INVANZ [Suspect]
     Indication: INFECTION
     Route: 041
     Dates: start: 20111101, end: 20111123

REACTIONS (5)
  - AGITATION [None]
  - FEELING ABNORMAL [None]
  - SPEECH DISORDER [None]
  - HALLUCINATION [None]
  - NIGHTMARE [None]
